FAERS Safety Report 19717109 (Version 9)
Quarter: 2024Q4

REPORT INFORMATION
  Report Type: Report from Study
  Country: US (occurrence: US)
  Receive Date: 20210818
  Receipt Date: 20241016
  Transmission Date: 20250114
  Serious: No
  Sender: NOVARTIS
  Company Number: NVSC2021US184552

PATIENT
  Sex: Female

DRUGS (1)
  1. COSENTYX [Suspect]
     Active Substance: SECUKINUMAB
     Indication: Product used for unknown indication
     Dosage: UNK
     Route: 050

REACTIONS (5)
  - Skin disorder [Unknown]
  - Condition aggravated [Unknown]
  - Skin lesion [Unknown]
  - Product storage error [Unknown]
  - Drug ineffective [Unknown]
